FAERS Safety Report 9734063 (Version 1)
Quarter: 2013Q4

REPORT INFORMATION
  Report Type: Spontaneous
  Country: IL (occurrence: IL)
  Receive Date: 20131205
  Receipt Date: 20131205
  Transmission Date: 20140711
  Serious: Yes (Other)
  Sender: FDA-Public Use
  Company Number: IL-BAYER-2013-145539

PATIENT
  Age: 24 Year
  Sex: Female

DRUGS (1)
  1. QLAIRA [Suspect]
     Dosage: UNK UNK, CONT
     Route: 048
     Dates: start: 201306

REACTIONS (1)
  - Tonsillitis [Not Recovered/Not Resolved]
